FAERS Safety Report 9440300 (Version 2)
Quarter: 2013Q4

REPORT INFORMATION
  Report Type: Spontaneous
  Country: US (occurrence: US)
  Receive Date: 20130805
  Receipt Date: 20131213
  Transmission Date: 20140711
  Serious: Yes (Hospitalization, Other)
  Sender: FDA-Public Use
  Company Number: US-ELI_LILLY_AND_COMPANY-US201307010284

PATIENT
  Sex: Female

DRUGS (8)
  1. CYMBALTA [Suspect]
     Indication: DEPRESSION
     Dosage: 60 MG, UNKNOWN
     Route: 065
     Dates: start: 201302, end: 201305
  2. CYMBALTA [Suspect]
     Indication: PAIN
     Dosage: 120 MG, UNKNOWN
     Route: 065
     Dates: start: 201302, end: 201305
  3. CYMBALTA [Suspect]
     Indication: ANXIETY
     Dosage: 20 MG, UNK
     Route: 065
     Dates: start: 20121018
  4. CYMBALTA [Suspect]
     Indication: NEUROPATHY PERIPHERAL
     Dosage: 20 MG, UNK
     Route: 065
     Dates: start: 20121018
  5. TOPAMAX [Concomitant]
     Dosage: UNK, UNKNOWN
     Route: 065
  6. SIMVASTATIN [Concomitant]
     Dosage: UNK, UNKNOWN
     Route: 065
  7. GABAPENTIN [Concomitant]
     Dosage: UNK, UNKNOWN
     Route: 065
  8. OXYCODONE [Concomitant]
     Indication: PAIN MANAGEMENT
     Dosage: UNK, UNKNOWN
     Route: 065
     Dates: start: 1998

REACTIONS (7)
  - Intentional self-injury [Recovered/Resolved]
  - Hallucination, visual [Unknown]
  - Mental disorder [Unknown]
  - Abnormal behaviour [Recovered/Resolved]
  - Drug withdrawal syndrome [Unknown]
  - Pain in extremity [Unknown]
  - Hypersensitivity [Unknown]
